FAERS Safety Report 17088677 (Version 4)
Quarter: 2020Q1

REPORT INFORMATION
  Report Type: Report from Study
  Country: None (occurrence: JP)
  Receive Date: 20191128
  Receipt Date: 20200331
  Transmission Date: 20200409
  Serious: Yes (Hospitalization)
  Sender: FDA-Public Use
  Company Number: JP-ABBVIE-18P-087-2258309-00

PATIENT
  Age: 54 Year
  Sex: Male
  Weight: 56.6 kg

DRUGS (3)
  1. VILDAGLIPTIN [Concomitant]
     Active Substance: VILDAGLIPTIN
     Indication: PRODUCT USED FOR UNKNOWN INDICATION
     Route: 065
     Dates: end: 20190723
  2. BEPOTASTINE BESILATE [Concomitant]
     Active Substance: BEPOTASTINE BESYLATE
     Indication: PRODUCT USED FOR UNKNOWN INDICATION
     Route: 065
  3. LEUPLIN [Suspect]
     Active Substance: LEUPROLIDE ACETATE
     Indication: BULBOSPINAL MUSCULAR ATROPHY CONGENITAL
     Dosage: 11.25 MG, Q3MONTHS
     Route: 058
     Dates: start: 20171026, end: 20190314

REACTIONS (6)
  - Gastrostomy [Unknown]
  - Pneumomediastinum [Recovered/Resolved]
  - Adjustment disorder [Not Recovered/Not Resolved]
  - Bronchiolitis [Recovered/Resolved]
  - Therapeutic product effect decreased [Unknown]
  - Libido increased [Recovered/Resolved]

NARRATIVE: CASE EVENT DATE: 201711
